FAERS Safety Report 17682449 (Version 1)
Quarter: 2020Q2

REPORT INFORMATION
  Report Type: Spontaneous
  Country: US (occurrence: US)
  Receive Date: 20200418
  Receipt Date: 20200418
  Transmission Date: 20200714
  Serious: No
  Sender: FDA-Public Use
  Company Number: US-PURDUE-USA-2019-0147047

PATIENT
  Age: 82 Year
  Sex: Female

DRUGS (1)
  1. HYDROCODONE BITARTRATE AND ACETAMINOPHEN [Suspect]
     Active Substance: ACETAMINOPHEN\HYDROCODONE BITARTRATE
     Indication: PAIN
     Dosage: (10/325 MG) 1 TABLET, TID
     Route: 048
     Dates: start: 201904

REACTIONS (7)
  - Agitation [Unknown]
  - Dizziness [Unknown]
  - Unevaluable event [Unknown]
  - Nausea [Unknown]
  - Confusional state [Unknown]
  - Feeling jittery [Unknown]
  - Gait disturbance [Unknown]

NARRATIVE: CASE EVENT DATE: 201904
